FAERS Safety Report 19619806 (Version 1)
Quarter: 2021Q3

REPORT INFORMATION
  Report Type: Spontaneous
  Country: US (occurrence: US)
  Receive Date: 20210728
  Receipt Date: 20210728
  Transmission Date: 20211014
  Serious: No
  Sender: FDA-Public Use
  Company Number: US-ROCHE-2679729

PATIENT
  Sex: Female

DRUGS (1)
  1. XELODA [Suspect]
     Active Substance: CAPECITABINE
     Indication: EMBOLISM VENOUS
     Route: 048
     Dates: start: 20200814

REACTIONS (4)
  - Off label use [Unknown]
  - Intentional product use issue [Unknown]
  - Dyspepsia [Unknown]
  - Nausea [Unknown]
